FAERS Safety Report 4602653-1 (Version None)
Quarter: 2005Q1

REPORT INFORMATION
  Report Type: 
  Country: None (occurrence: None)
  Receive Date: 20050307
  Receipt Date: 20050218
  Transmission Date: 20050727
  Serious: Yes (Other)
  Sender: FDA-Public Use
  Company Number: S05-SWI-00735-01

PATIENT
  Age: 85 Year
  Sex: Female

DRUGS (8)
  1. SEROPRAM (CITALOPRAM HYDROBROMIDE) [Suspect]
     Indication: BACK PAIN
     Dosage: 10 MG QD PO
     Route: 048
  2. OXYCONTIN [Suspect]
     Indication: SCIATICA
     Dosage: 10 MG BID PO
     Route: 048
     Dates: start: 20050112, end: 20050114
  3. PARLODEL [Suspect]
     Indication: PARKINSON'S DISEASE
     Dosage: 2.5 MG Q4HR PO
     Route: 048
  4. MADOPAR [Concomitant]
  5. EFFORTIL (ETILEFRINE HYDROCHLORIDE) [Concomitant]
  6. MAGNESIUM [Concomitant]
  7. TRANSIPEG (MACROGOL) [Concomitant]
  8. MORPHINE SULFATE [Concomitant]

REACTIONS (5)
  - ACTIVITIES OF DAILY LIVING IMPAIRED [None]
  - ASTHENIA [None]
  - FALL [None]
  - MUSCLE RIGIDITY [None]
  - MUSCULOSKELETAL STIFFNESS [None]
